FAERS Safety Report 6739754-8 (Version None)
Quarter: 2010Q2

REPORT INFORMATION
  Report Type: 
  Country: None (occurrence: None)
  Receive Date: 20100521
  Receipt Date: 20100505
  Transmission Date: 20101027
  Serious: Yes (Death)
  Sender: FDA-Public Use
  Company Number: CTI_01196_2010

PATIENT
  Sex: Male

DRUGS (14)
  1. CUROSURF / 01227201 / CUROSURF  PORACTANT ALFA) [Suspect]
     Indication: NEONATAL RESPIRATORY DISTRESS SYNDROME
     Dosage: (240 MG QD ENDOTRACHEAL)
  2. AMPICILLIN [Concomitant]
  3. CEFOTAXIME [Concomitant]
  4. THEOPHYLLINE [Concomitant]
  5. FUROSEMIDE [Concomitant]
  6. ETOMIDATE [Concomitant]
  7. ROCURONIUM BROMIDE [Concomitant]
  8. ATROPINE [Concomitant]
  9. MSI [Concomitant]
  10. CALCIUM CARBONATE [Concomitant]
  11. PHENOBARBITAL [Concomitant]
  12. GENTAMICIN [Concomitant]
  13. HEPARIN [Concomitant]
  14. MIDAZOLAM HCL [Concomitant]

REACTIONS (5)
  - DRUG EFFECT DECREASED [None]
  - DRUG INEFFECTIVE [None]
  - INFECTION [None]
  - PNEUMOTHORAX [None]
  - PULMONARY HAEMORRHAGE [None]
